FAERS Safety Report 8298807-6 (Version None)
Quarter: 2012Q1

REPORT INFORMATION
  Report Type: 
  Country: None (occurrence: None)
  Receive Date: 20120323
  Receipt Date: 20090717
  Transmission Date: 20120608
  Serious: Yes (Hospitalization)
  Sender: FDA-Public Use
  Company Number: PHEH2009US07789

PATIENT
  Age: 50 Year
  Sex: Female

DRUGS (1)
  1. TOBI [Suspect]
     Dosage: NIHALATION
     Route: 055
     Dates: start: 20090415

REACTIONS (1)
  - PYREXIA [None]
